FAERS Safety Report 24365732 (Version 1)
Quarter: 2024Q3

REPORT INFORMATION
  Report Type: Spontaneous
  Country: GB (occurrence: GB)
  Receive Date: 20240926
  Receipt Date: 20240926
  Transmission Date: 20241016
  Serious: Yes (Other)
  Sender: AUROBINDO
  Company Number: GB-MHRA-MIDB-GB-MHRA-MIDB-fd53304b-68f8-4620-a7a6-bd883841f054

PATIENT
  Age: 79 Year

DRUGS (12)
  1. MIRTAZAPINE [Suspect]
     Active Substance: MIRTAZAPINE
     Indication: Product used for unknown indication
     Dosage: 30 MILLIGRAM, ONCE A DAY
     Route: 065
  2. ASPIRIN [Suspect]
     Active Substance: ASPIRIN
     Indication: Product used for unknown indication
     Dosage: 75 MILLIGRAM, ONCE A DAY
  3. AMLODIPINE [Concomitant]
     Active Substance: AMLODIPINE BESYLATE
     Indication: Product used for unknown indication
     Dosage: 10 MILLIGRAM, ONCE A DAY(10 MG TABLETS ONE TO BE TAKEN EACH DAY)
     Route: 065
  4. COCODAMOL [Concomitant]
     Active Substance: ACETAMINOPHEN\CODEINE PHOSPHATE
     Indication: Product used for unknown indication
     Dosage: 30 MG / 500 MG TABLETS ONE OR TWO TO BE TAKEN FOUR TIMES A DAY WHEN REQUIRED
     Route: 065
  5. ATORVASTATIN [Concomitant]
     Active Substance: ATORVASTATIN
     Indication: Product used for unknown indication
     Dosage: 80 MILLIGRAM, ONCE A DAY(80 MG TABLETS ONE TO BE TAKEN EACH DAY)
     Route: 065
  6. DOXAZOSIN [Concomitant]
     Active Substance: DOXAZOSIN MESYLATE
     Indication: Product used for unknown indication
     Dosage: 8 MILLIGRAM(8 MG TABLETS ONE TO BE TAKEN TWICE A DAY)
     Route: 065
  7. CHOLECALCIFEROL [Concomitant]
     Active Substance: CHOLECALCIFEROL
     Indication: Product used for unknown indication
     Dosage: 1.25 GRAM, ONCE A DAY(400 UNIT / CALCIUM CARBONATE 1.25 G CHEWABLE TABLETS ONE TO BE TAKEN EACH DAY-
     Route: 065
  8. SPIKEVAX [Concomitant]
     Active Substance: CX-046684
     Indication: Product used for unknown indication
     Dosage: UNK
     Route: 030
     Dates: start: 20240430, end: 20240430
  9. OMEPRAZOLE [Concomitant]
     Active Substance: OMEPRAZOLE
     Indication: Product used for unknown indication
     Dosage: 20 MILLIGRAM, ONCE A DAY(20 MG GASTRO-RESISTANT CAPSULES ONE TO BE TAKEN EACH DAY)
     Route: 065
  10. SOTALOL [Concomitant]
     Active Substance: SOTALOL\SOTALOL HYDROCHLORIDE
     Indication: Product used for unknown indication
     Dosage: 80 MILLIGRAM(80 MG TABLETS ONE TO BE TAKEN TWICE A DAY)
     Route: 065
  11. SPIRIVA RESPIMAT [Concomitant]
     Active Substance: TIOTROPIUM BROMIDE
     Indication: Product used for unknown indication
     Dosage: 2 DOSAGE FORM, ONCE A DAY(2.5 MICROGRAMS / DOSE INHALATION SOLUTION CARTRIDGE WITH DEVICE TWOPUFFS T
  12. RAMIPRIL [Concomitant]
     Active Substance: RAMIPRIL
     Indication: Product used for unknown indication
     Dosage: 10 MILLIGRAM, ONCE A DAY(10 MG CAPSULES ONE TO BE TAKEN EACH DAY)
     Route: 065

REACTIONS (1)
  - Gastrointestinal haemorrhage [Unknown]
